FAERS Safety Report 6346011-0 (Version None)
Quarter: 2009Q3

REPORT INFORMATION
  Report Type: 
  Country: None (occurrence: None)
  Receive Date: 20090909
  Receipt Date: 19990525
  Transmission Date: 20100115
  Serious: No
  Sender: FDA-Public Use
  Company Number: US-ABBOTT-08P-163-0468204-00

PATIENT

DRUGS (1)
  1. DICUMAROL 50MG [Suspect]
     Indication: DRUG USE FOR UNKNOWN INDICATION
     Dosage: PO 1 WEEK

REACTIONS (1)
  - DRUG INEFFECTIVE [None]
